FAERS Safety Report 5720300-2 (Version None)
Quarter: 2008Q2

REPORT INFORMATION
  Report Type: 
  Country: None (occurrence: None)
  Receive Date: 20080428
  Receipt Date: 20080416
  Transmission Date: 20081010
  Serious: Yes (Other)
  Sender: FDA-Public Use
  Company Number: GB-PFIZER INC-2008034428

PATIENT
  Age: 41 Year
  Sex: Female
  Weight: 95 kg

DRUGS (2)
  1. CHAMPIX [Suspect]
     Indication: SMOKING CESSATION THERAPY
     Dosage: TEXT:1 MG
     Route: 048
     Dates: start: 20070820, end: 20070901
  2. ATORVASTATIN CALCIUM [Concomitant]
     Route: 048

REACTIONS (2)
  - LIP SWELLING [None]
  - URTICARIA [None]
